FAERS Safety Report 7541006-3 (Version None)
Quarter: 2011Q2

REPORT INFORMATION
  Report Type: 
  Country: None (occurrence: None)
  Receive Date: 20110610
  Receipt Date: 20110603
  Transmission Date: 20111010
  Serious: Yes (Hospitalization, Other)
  Sender: FDA-Public Use
  Company Number: AU-ELI_LILLY_AND_COMPANY-AU201106001450

PATIENT
  Sex: Male

DRUGS (4)
  1. DIURETICS [Concomitant]
  2. BYETTA [Suspect]
     Indication: TYPE 2 DIABETES MELLITUS
     Dosage: 5 UG, BID
     Dates: start: 20110519
  3. ANTIHYPERTENSIVES [Concomitant]
  4. MAGNESIUM SULFATE [Concomitant]

REACTIONS (1)
  - CARDIAC DISORDER [None]
